FAERS Safety Report 12467639 (Version 1)
Quarter: 2016Q2

REPORT INFORMATION
  Report Type: Spontaneous
  Country: US (occurrence: US)
  Receive Date: 20160615
  Receipt Date: 20160615
  Transmission Date: 20160815
  Serious: No
  Sender: FDA-Public Use
  Company Number: US-BAYER-2016-112071

PATIENT
  Age: 57 Year
  Sex: Female
  Weight: 81.63 kg

DRUGS (3)
  1. ALEVE [Suspect]
     Active Substance: NAPROXEN SODIUM
     Indication: JOINT INJURY
  2. ALEVE [Suspect]
     Active Substance: NAPROXEN SODIUM
     Indication: LIGAMENT SPRAIN
     Dosage: 2 DF, PRN
     Route: 048
  3. BAYER LOW DOSE [Suspect]
     Active Substance: ASPIRIN
     Indication: CEREBROVASCULAR ACCIDENT PROPHYLAXIS
     Dosage: 1 DF, QD
     Route: 048
     Dates: start: 2007

REACTIONS (5)
  - Vomiting [Recovered/Resolved]
  - Nausea [Recovered/Resolved]
  - Nausea [Recovered/Resolved]
  - Product use issue [None]
  - Vomiting [Recovered/Resolved]

NARRATIVE: CASE EVENT DATE: 20160502
